FAERS Safety Report 10064721 (Version 1)
Quarter: 2014Q1

REPORT INFORMATION
  Report Type: Spontaneous
  Country: US (occurrence: None)
  Receive Date: 20140328
  Receipt Date: 20140328
  Transmission Date: 20141002
  Serious: No
  Sender: FDA-Public Use
  Company Number: 1000053344

PATIENT
  Age: 52 Year
  Sex: Female

DRUGS (5)
  1. LINZESS (LINACLOTIDE) (145 MICROGRAM, CAPSULES) [Suspect]
     Indication: CONSTIPATION
     Route: 048
     Dates: start: 20140108
  2. LEVETIRACETAM [Concomitant]
  3. OMEPRAZOLE [Concomitant]
  4. GABAPENTIN [Concomitant]
  5. LAMOTRIGINE [Concomitant]

REACTIONS (2)
  - Diarrhoea [None]
  - Intentional drug misuse [None]
